FAERS Safety Report 4690323-3 (Version None)
Quarter: 2005Q2

REPORT INFORMATION
  Report Type: 
  Country: None (occurrence: None)
  Receive Date: 20050615
  Receipt Date: 20050602
  Transmission Date: 20051028
  Serious: Yes (Other)
  Sender: FDA-Public Use
  Company Number: US-BRISTOL-MYERS SQUIBB COMPANY-12992061

PATIENT
  Age: 20 Year
  Sex: Male
  Weight: 63 kg

DRUGS (3)
  1. KENALOG [Suspect]
     Indication: HYPERSENSITIVITY
     Dates: start: 20050527, end: 20050527
  2. ZYRTEC [Concomitant]
  3. CLARITIN [Concomitant]

REACTIONS (2)
  - HEAD INJURY [None]
  - LOSS OF CONSCIOUSNESS [None]
